FAERS Safety Report 9511072 (Version 2)
Quarter: 2013Q4

REPORT INFORMATION
  Report Type: Spontaneous
  Country: US (occurrence: None)
  Receive Date: 20130905
  Receipt Date: 20131008
  Transmission Date: 20140711
  Serious: Yes (Hospitalization, Other)
  Sender: FDA-Public Use
  Company Number: SYM-2013-10233

PATIENT
  Age: 73 Year
  Sex: Female

DRUGS (1)
  1. XENAZINE(TETRABENAZINE)(12.5 MILLIGRAM, TABLET)(TETRABENAZINE) [Suspect]
     Indication: HUNTINGTON^S DISEASE
     Route: 048
     Dates: start: 20110712

REACTIONS (6)
  - Fall [None]
  - Haematoma [None]
  - Musculoskeletal disorder [None]
  - Incontinence [None]
  - Dysphagia [None]
  - Confusional state [None]
